FAERS Safety Report 8548082-X (Version None)
Quarter: 2012Q3

REPORT INFORMATION
  Report Type: 
  Country: None (occurrence: None)
  Receive Date: 20120730
  Receipt Date: 20120711
  Transmission Date: 20120928
  Serious: No
  Sender: FDA-Public Use
  Company Number: US-009507513-1207USA003767

PATIENT

DRUGS (1)
  1. NEXPLANON [Suspect]

REACTIONS (2)
  - IMPLANT SITE PAIN [None]
  - IMPLANT SITE PRURITUS [None]
